FAERS Safety Report 10965009 (Version 1)
Quarter: 2015Q1

REPORT INFORMATION
  Report Type: Spontaneous
  Country: TR (occurrence: None)
  Receive Date: 20150326
  Receipt Date: 20150326
  Transmission Date: 20150721
  Serious: Yes (Other)
  Sender: FDA-Public Use
  Company Number: 1572964

PATIENT
  Sex: Female

DRUGS (3)
  1. CAPECITABINE. [Suspect]
     Active Substance: CAPECITABINE
     Indication: CHEMOTHERAPY
  2. ADJUVANT CHEMOTHERAPY [Concomitant]
     Active Substance: UNSPECIFIED INGREDIENT
  3. PHENYTOIN SODIUM (NON-SPECIFIC) [Suspect]
     Active Substance: PHENYTOIN SODIUM
     Indication: PROPHYLAXIS

REACTIONS (11)
  - General physical health deterioration [None]
  - Vision blurred [None]
  - Incoherent [None]
  - Toxicity to various agents [None]
  - Ataxia [None]
  - Hallucination [None]
  - Nystagmus [None]
  - Altered state of consciousness [None]
  - Dysarthria [None]
  - Disorientation [None]
  - Speech disorder [None]
